FAERS Safety Report 7248841-X (Version None)
Quarter: 2011Q1

REPORT INFORMATION
  Report Type: 
  Country: None (occurrence: None)
  Receive Date: 20110128
  Receipt Date: 20090914
  Transmission Date: 20110831
  Serious: Yes (Other)
  Sender: FDA-Public Use
  Company Number: US-BAYER-200921496NA

PATIENT
  Sex: Female
  Weight: 80.5 kg

DRUGS (30)
  1. PROHANCE [Suspect]
     Indication: NUCLEAR MAGNETIC RESONANCE IMAGING
  2. EPOGEN [Concomitant]
     Indication: ANAEMIA
     Dosage: 25000 U, TIW
     Dates: start: 20030904, end: 20040423
  3. HYDROCODONE BITARTRATE [Concomitant]
     Dosage: 500 MG, UNK
     Route: 048
     Dates: start: 20060320
  4. TRIMETHOPRIM + SULFAMETHOXAZOLE [Concomitant]
     Dosage: 1 TAB BID FOR 7 DAYS
     Route: 048
     Dates: start: 20060320
  5. ISOVUE-300 [Concomitant]
     Dosage: 125 ML, UNK
     Route: 042
     Dates: start: 20051115, end: 20051115
  6. OMNISCAN [Suspect]
     Indication: NUCLEAR MAGNETIC RESONANCE IMAGING
     Dosage: 20 ML, UNK
     Dates: start: 20060630, end: 20060630
  7. OMNISCAN [Suspect]
  8. OPTIMARK [Suspect]
     Indication: NUCLEAR MAGNETIC RESONANCE IMAGING
  9. METRONIDAZOLE [Concomitant]
     Dosage: 500 MG, BID
     Dates: start: 20051125
  10. MAGNEVIST [Suspect]
  11. SENSIPAR [Concomitant]
     Dosage: DAILY DOSE 90 MG
     Route: 048
     Dates: start: 20041005, end: 20081031
  12. NEPHROCAPS [Concomitant]
     Dosage: ONE A DAY
  13. ALBUTEROL [Concomitant]
     Dosage: 2 PUFF(S), EVER4 TO 6 HOURS AS NEEDED
  14. PREDNISONE [Concomitant]
     Dosage: UNK
     Route: 048
     Dates: start: 20050930
  15. MAGNEVIST [Suspect]
     Indication: NECK PAIN
  16. RANITIDINE [Concomitant]
     Dosage: 150 MG, QID, PRN
     Dates: start: 20020821, end: 20081031
  17. CLINDAMYCIN [Concomitant]
     Dosage: UNK
     Route: 061
     Dates: start: 20061004
  18. MAGNEVIST [Suspect]
     Indication: NUCLEAR MAGNETIC RESONANCE IMAGING
     Dosage: 15 ML, UNK
     Dates: start: 20040212, end: 20040212
  19. MAGNEVIST [Suspect]
     Indication: INFECTION
  20. MULTIHANCE [Suspect]
     Indication: NUCLEAR MAGNETIC RESONANCE IMAGING
  21. GADOLINIUM IN UNSPECIFIED DRUG [Suspect]
     Indication: X-RAY
     Dosage: UNK
     Dates: start: 20020628, end: 20020628
  22. OMEGA [CARBINOXAMINE MALEATE] [Concomitant]
     Dosage: 1 DF, QD
  23. PROTONIX [Concomitant]
     Dosage: 40 MG, QAM
  24. AMITRIPTYLINE HCL [Concomitant]
     Dosage: 20 MG, UNK
     Route: 048
  25. ATENOLOL [Concomitant]
     Dosage: 12.5 MG, HS
  26. RENAGEL [Concomitant]
     Dosage: 800 MG, TID
     Route: 048
     Dates: start: 20020528, end: 20081031
  27. NEURONTIN [Concomitant]
     Dosage: 100 MG, QID
  28. WARFARIN SODIUM [Concomitant]
     Dosage: 5 MG, QID
     Dates: start: 20000101
  29. ZEMPLAR [Concomitant]
     Dosage: 4 ?G, TIW (GIVEN AT DIALYSIS)
  30. GABAPENTIN [Concomitant]
     Dosage: 100 MG, BID
     Dates: start: 20060703, end: 20081023

REACTIONS (22)
  - GAIT DISTURBANCE [None]
  - RASH PAPULAR [None]
  - MUSCLE TIGHTNESS [None]
  - SKIN FIBROSIS [None]
  - BONE PAIN [None]
  - MOBILITY DECREASED [None]
  - EMOTIONAL DISTRESS [None]
  - SKIN HYPERTROPHY [None]
  - DEFORMITY [None]
  - NEPHROGENIC SYSTEMIC FIBROSIS [None]
  - SCAR [None]
  - SKIN INDURATION [None]
  - MUSCULOSKELETAL STIFFNESS [None]
  - PAIN OF SKIN [None]
  - JOINT RANGE OF MOTION DECREASED [None]
  - GENERAL PHYSICAL HEALTH DETERIORATION [None]
  - SKIN DISORDER [None]
  - SKIN DISCOLOURATION [None]
  - PRURITUS [None]
  - PAIN [None]
  - ANXIETY [None]
  - QUALITY OF LIFE DECREASED [None]
